FAERS Safety Report 5338792-X (Version None)
Quarter: 2007Q2

REPORT INFORMATION
  Report Type: 
  Country: None (occurrence: None)
  Receive Date: 20070328
  Receipt Date: 20060615
  Transmission Date: 20071010
  Serious: Yes (Hospitalization)
  Sender: FDA-Public Use
  Company Number: K200600773

PATIENT
  Age: 92 Year
  Sex: Male
  Weight: 69.4 kg

DRUGS (4)
  1. ALTACE [Suspect]
     Indication: HYPERTENSION
     Dosage: 10 MG, QD, ORAL
     Route: 048
     Dates: end: 20060501
  2. TOPROL-XL [Concomitant]
  3. LIPITOR [Concomitant]
  4. ARICEPT [Concomitant]

REACTIONS (1)
  - SYNCOPE [None]
